FAERS Safety Report 18317930 (Version 1)
Quarter: 2020Q3

REPORT INFORMATION
  Report Type: Spontaneous
  Country: US (occurrence: US)
  Receive Date: 20200928
  Receipt Date: 20200928
  Transmission Date: 20201103
  Serious: Yes (Other)
  Sender: FDA-Public Use
  Company Number: US-AUROBINDO-AUR-APL-2013-03592

PATIENT
  Age: 35 Year
  Sex: Female

DRUGS (5)
  1. LACTULOSE. [Concomitant]
     Active Substance: LACTULOSE
     Indication: PRODUCT USED FOR UNKNOWN INDICATION
     Dosage: UNK UNK,UNK,
     Route: 065
  2. ZOLPIDEM [Concomitant]
     Active Substance: ZOLPIDEM TARTRATE
     Indication: PRODUCT USED FOR UNKNOWN INDICATION
     Dosage: 5 MG,UNK,
     Route: 065
  3. POTASSIUM CHLORIDE. [Concomitant]
     Active Substance: POTASSIUM CHLORIDE
     Indication: PRODUCT USED FOR UNKNOWN INDICATION
     Dosage: 10 MEQ,UNK,
     Route: 065
  4. FLUOXETINE [Suspect]
     Active Substance: FLUOXETINE HYDROCHLORIDE
     Indication: MAJOR DEPRESSION
     Dosage: 60 MILLIGRAM
     Route: 065
  5. TRIAMCINOLONE [Interacting]
     Active Substance: TRIAMCINOLONE
     Indication: PRODUCT USED FOR UNKNOWN INDICATION
     Dosage: EVERY 3 MONTHS,
     Route: 014

REACTIONS (13)
  - Dyspepsia [Recovered/Resolved]
  - Hypokalaemia [Recovering/Resolving]
  - Adrenal suppression [Recovered/Resolved]
  - Drug level increased [Recovered/Resolved]
  - Alkalosis [Not Recovered/Not Resolved]
  - Abdominal pain [Recovered/Resolved]
  - Cushing^s syndrome [Unknown]
  - Ulcer [Unknown]
  - Drug interaction [Unknown]
  - Electrolyte imbalance [Unknown]
  - Vomiting [Unknown]
  - Peptic ulcer [Recovered/Resolved]
  - Blood corticotrophin abnormal [Not Recovered/Not Resolved]
